FAERS Safety Report 24745567 (Version 1)
Quarter: 2024Q4

REPORT INFORMATION
  Report Type: Spontaneous
  Country: GB (occurrence: GB)
  Receive Date: 20241218
  Receipt Date: 20241218
  Transmission Date: 20250114
  Serious: Yes (Other)
  Sender: Kenvue
  Company Number: None

PATIENT

DRUGS (3)
  1. ACETAMINOPHEN [Suspect]
     Active Substance: ACETAMINOPHEN
     Indication: Pyrexia
     Dosage: 7.5 MILLILITER
     Route: 048
     Dates: end: 20241208
  2. CALPOL [Suspect]
     Active Substance: ACETAMINOPHEN
     Indication: Adverse drug reaction
     Dosage: 7.5 MILLILITER, ONCE
     Route: 065
     Dates: start: 20241208, end: 20241208
  3. CALPOL [Suspect]
     Active Substance: ACETAMINOPHEN
     Indication: Pyrexia

REACTIONS (7)
  - Hallucination [Unknown]
  - Product administered to patient of inappropriate age [Unknown]
  - Somnolence [Unknown]
  - Fear [Unknown]
  - Confusional state [Unknown]
  - Disorientation [Unknown]
  - Memory impairment [Unknown]

NARRATIVE: CASE EVENT DATE: 20241208
